FAERS Safety Report 5270070-X (Version None)
Quarter: 2007Q1

REPORT INFORMATION
  Report Type: 
  Country: None (occurrence: None)
  Receive Date: 20070320
  Receipt Date: 20070307
  Transmission Date: 20070707
  Serious: Yes (Other)
  Sender: FDA-Public Use
  Company Number: PHBS2007JP04278

PATIENT
  Age: 77 Year
  Sex: Female

DRUGS (1)
  1. LUDIOMIL [Suspect]
     Indication: DEPRESSION
     Route: 048
     Dates: start: 20060901

REACTIONS (1)
  - PNEUMONIA [None]
